FAERS Safety Report 13986106 (Version 1)
Quarter: 2017Q3

REPORT INFORMATION
  Report Type: Spontaneous
  Country: US (occurrence: US)
  Receive Date: 20170919
  Receipt Date: 20170919
  Transmission Date: 20171128
  Serious: No
  Sender: FDA-Public Use
  Company Number: US-BRISTOL-MYERS SQUIBB COMPANY-BMS-2017-083775

PATIENT
  Sex: Female

DRUGS (1)
  1. YERVOY [Suspect]
     Active Substance: IPILIMUMAB
     Indication: MALIGNANT MELANOMA
     Dosage: 10 MG/KG, UNK
     Route: 042
     Dates: start: 20170804

REACTIONS (7)
  - Nausea [Unknown]
  - Hypersensitivity [Unknown]
  - Headache [Unknown]
  - Influenza like illness [Unknown]
  - Sinusitis [Unknown]
  - Off label use [Unknown]
  - Neck pain [Unknown]
